FAERS Safety Report 17879603 (Version 1)
Quarter: 2020Q2

REPORT INFORMATION
  Report Type: Spontaneous
  Country: US (occurrence: US)
  Receive Date: 20200609
  Receipt Date: 20200609
  Transmission Date: 20200714
  Serious: Yes (Other)
  Sender: FDA-Public Use
  Company Number: None

PATIENT
  Age: 48 Year
  Sex: Female
  Weight: 65.25 kg

DRUGS (3)
  1. NAPAROXIN [Concomitant]
  2. NP THYROID [Suspect]
     Active Substance: LEVOTHYROXINE\LIOTHYRONINE
     Indication: AUTOIMMUNE THYROIDITIS
     Dosage: ?          QUANTITY:90 TABLET(S);?
     Route: 048
     Dates: start: 20190513, end: 20191119
  3. LEVOTHYROXINE. [Concomitant]
     Active Substance: LEVOTHYROXINE

REACTIONS (11)
  - Mental disorder [None]
  - Sleep disorder [None]
  - Palpitations [None]
  - Arthralgia [None]
  - Stress [None]
  - Muscular weakness [None]
  - Furuncle [None]
  - Arrhythmia [None]
  - Weight abnormal [None]
  - Fatigue [None]
  - Temperature intolerance [None]

NARRATIVE: CASE EVENT DATE: 20190808
